FAERS Safety Report 21336396 (Version 1)
Quarter: 2022Q3

REPORT INFORMATION
  Report Type: Spontaneous
  Country: FR (occurrence: FR)
  Receive Date: 20220915
  Receipt Date: 20220915
  Transmission Date: 20221027
  Serious: Yes (Hospitalization)
  Sender: FDA-Public Use
  Company Number: None

PATIENT
  Age: 48 Year
  Sex: Female
  Weight: 58.5 kg

DRUGS (3)
  1. FLUDARABINE PHOSPHATE [Suspect]
     Active Substance: FLUDARABINE PHOSPHATE
     Indication: Bone marrow conditioning regimen
     Dosage: FLUDARABINE (PHOSPHATE DE) ,UNIT DOSE : 50 MG  , FREQUENCY TIME :1 DAY   , DURATION : 2 DAY
     Dates: start: 20220408, end: 20220410
  2. YESCARTA [Suspect]
     Active Substance: AXICABTAGENE CILOLEUCEL
     Indication: Diffuse large B-cell lymphoma
     Dosage: UNIT DOSE : 1 DF  , FREQUENCY TIME :  1 DAY
     Dates: start: 20220413, end: 20220413
  3. CYCLOPHOSPHAMIDE [Suspect]
     Active Substance: CYCLOPHOSPHAMIDE
     Indication: Bone marrow conditioning regimen
     Dosage: UNIT DOSE : 835 MG  , FREQUENCY TIME : 1 DAY  , DURATION : 2 DAY
     Dates: start: 20220408, end: 20220410

REACTIONS (1)
  - Cytokine release syndrome [Recovered/Resolved]

NARRATIVE: CASE EVENT DATE: 20220417
